FAERS Safety Report 16472077 (Version 1)
Quarter: 2019Q2

REPORT INFORMATION
  Report Type: Spontaneous
  Country: TW (occurrence: TW)
  Receive Date: 20190625
  Receipt Date: 20190625
  Transmission Date: 20190711
  Serious: Yes (Hospitalization, Other)
  Sender: FDA-Public Use
  Company Number: TW-STRIDES ARCOLAB LIMITED-2019SP005261

PATIENT
  Sex: Female

DRUGS (2)
  1. ZOLPIDEM [Suspect]
     Active Substance: ZOLPIDEM\ZOLPIDEM TARTRATE
     Dosage: UNK,GRADUALLY INCREASED THE TOTAL DOSAGE OF ZOLPIDEM TO 400 MG/DAY IN DIVIDED DOSES
     Route: 065
  2. ZOLPIDEM [Suspect]
     Active Substance: ZOLPIDEM\ZOLPIDEM TARTRATE
     Indication: ANXIETY DISORDER
     Dosage: UNK, TAKING ZOLPIDEM FOR MORE THAN 10 YEARS
     Route: 065

REACTIONS (13)
  - Muscle twitching [Recovered/Resolved]
  - Seizure [Recovered/Resolved]
  - Dysarthria [Recovered/Resolved]
  - Mastication disorder [Recovered/Resolved]
  - Protrusion tongue [Recovered/Resolved]
  - Sinus tachycardia [Recovered/Resolved]
  - Drug dependence [Unknown]
  - Psychotic behaviour [Recovered/Resolved]
  - Delirium [Recovered/Resolved]
  - Soliloquy [Recovered/Resolved]
  - Dyskinesia [Recovered/Resolved]
  - Withdrawal syndrome [Unknown]
  - Hallucination, visual [Recovered/Resolved]
